FAERS Safety Report 9001547 (Version 3)
Quarter: 2013Q1

REPORT INFORMATION
  Report Type: Spontaneous
  Country: US (occurrence: US)
  Receive Date: 20130107
  Receipt Date: 20130301
  Transmission Date: 20140127
  Serious: Yes (Other)
  Sender: FDA-Public Use
  Company Number: US-GILEAD-2013-0067330

PATIENT
  Sex: Male

DRUGS (2)
  1. LETAIRIS [Suspect]
     Indication: COR PULMONALE CHRONIC
     Dosage: 10 MG, QD
     Route: 048
     Dates: start: 20120517
  2. REVATIO [Concomitant]

REACTIONS (4)
  - Stent placement [Unknown]
  - Cough [Unknown]
  - Loss of consciousness [Unknown]
  - Dyspnoea [Unknown]
